FAERS Safety Report 5468678-1 (Version None)
Quarter: 2007Q3

REPORT INFORMATION
  Report Type: 
  Country: None (occurrence: None)
  Receive Date: 20070926
  Receipt Date: 20070914
  Transmission Date: 20080115
  Serious: Yes (Hospitalization, Other)
  Sender: FDA-Public Use
  Company Number: JP-SANOFI-SYNTHELABO-F01200700835

PATIENT
  Sex: Male
  Weight: 56.8 kg

DRUGS (5)
  1. ALDACTONE [Concomitant]
     Dosage: 25 MG
     Route: 048
     Dates: start: 20070223
  2. FRANDOL TAPE [Concomitant]
     Dosage: 20 MG
     Route: 062
     Dates: start: 20070223
  3. LASIX [Concomitant]
     Dosage: 40 MG
     Route: 048
     Dates: start: 20070223
  4. CLOPIDOGREL [Suspect]
     Indication: CEREBRAL ISCHAEMIA
     Route: 048
     Dates: start: 20070308, end: 20070425
  5. HUMULIN R [Concomitant]
     Indication: DIABETES MELLITUS
     Dosage: 4-6 DOSES
     Route: 042
     Dates: start: 20070223

REACTIONS (2)
  - HYPERGLYCAEMIA [None]
  - IRON DEFICIENCY ANAEMIA [None]
